FAERS Safety Report 12808892 (Version 4)
Quarter: 2018Q3

REPORT INFORMATION
  Report Type: Report from Study
  Country: BR (occurrence: BR)
  Receive Date: 20161004
  Receipt Date: 20180705
  Transmission Date: 20181010
  Serious: Yes (Other)
  Sender: FDA-Public Use
  Company Number: PHHY2014BR072082

PATIENT
  Sex: Female
  Weight: 62 kg

DRUGS (4)
  1. ACLASTA [Suspect]
     Active Substance: ZOLEDRONIC ACID
     Dosage: 5 MG/100ML, Q12MO
     Route: 042
     Dates: start: 2013
  2. ACLASTA [Suspect]
     Active Substance: ZOLEDRONIC ACID
     Indication: OSTEOPOROSIS
     Dosage: 5 MG/100ML, Q12MO
     Route: 042
  3. ACLASTA [Suspect]
     Active Substance: ZOLEDRONIC ACID
     Dosage: 5 MG/100ML, Q12MO ( (3 YEARS AGO))
     Route: 042
  4. CAPILAREMA [Concomitant]
     Indication: VEIN DISORDER
     Dosage: 8 DF, QD
     Route: 065

REACTIONS (5)
  - Hypoacusis [Unknown]
  - Obesity [Unknown]
  - Deafness bilateral [Not Recovered/Not Resolved]
  - Body height decreased [Not Recovered/Not Resolved]
  - Pain [Unknown]
